FAERS Safety Report 23019048 (Version 4)
Quarter: 2025Q2

REPORT INFORMATION
  Report Type: Report from Study
  Country: BR (occurrence: BR)
  Receive Date: 20231003
  Receipt Date: 20250404
  Transmission Date: 20250716
  Serious: Yes (Other)
  Sender: CELLTRION
  Company Number: BR-CELLTRION INC.-2023BR004845

PATIENT

DRUGS (5)
  1. INFLIXIMAB-DYYB [Suspect]
     Active Substance: INFLIXIMAB-DYYB
     Indication: Ankylosing spondylitis
     Route: 042
     Dates: start: 20221006, end: 20230222
  2. HYDROCHLOROTHIAZIDE [Concomitant]
     Active Substance: HYDROCHLOROTHIAZIDE
     Indication: Hypertension
     Route: 048
     Dates: start: 2016
  3. AMLODIPINE [Concomitant]
     Active Substance: AMLODIPINE BESYLATE
     Indication: Hypertension
     Route: 048
     Dates: start: 2016
  4. SERTRALINE [Concomitant]
     Active Substance: SERTRALINE HYDROCHLORIDE
     Indication: Fibromyalgia
     Route: 048
     Dates: start: 2019
  5. NORTRIPTYLINE [Concomitant]
     Active Substance: NORTRIPTYLINE
     Indication: Fibromyalgia
     Route: 048
     Dates: start: 2019

REACTIONS (18)
  - Uveitis [Unknown]
  - Dactylitis [Unknown]
  - Quadriplegia [Unknown]
  - Exostosis of jaw [Unknown]
  - Tooth disorder [Unknown]
  - Arthralgia [Unknown]
  - Bacterial infection [Unknown]
  - Illness [Unknown]
  - Influenza like illness [Unknown]
  - Pain [Unknown]
  - Pain in extremity [Unknown]
  - Arthralgia [Unknown]
  - Asthenia [Unknown]
  - Dizziness [Unknown]
  - Drug ineffective [Unknown]
  - Intentional dose omission [Unknown]
  - Therapy interrupted [Unknown]
  - Product dispensing issue [Unknown]
